FAERS Safety Report 17103132 (Version 1)
Quarter: 2019Q4

REPORT INFORMATION
  Report Type: Spontaneous
  Country: US (occurrence: US)
  Receive Date: 20191202
  Receipt Date: 20191202
  Transmission Date: 20200122
  Serious: Yes (Other)
  Sender: FDA-Public Use
  Company Number: None

PATIENT
  Age: 53 Year
  Sex: Female
  Weight: 114.75 kg

DRUGS (2)
  1. DULOXETINE DR 30MG [Suspect]
     Active Substance: DULOXETINE
     Indication: PAIN
     Dosage: ?          QUANTITY:2 2 30MG OR 1 60MG;?
     Route: 048
     Dates: start: 20191017
  2. DULOXETINE DR 60MG CAP [Suspect]
     Active Substance: DULOXETINE

REACTIONS (4)
  - Anxiety [None]
  - Fear of disease [None]
  - Tremor [None]
  - Feeling jittery [None]

NARRATIVE: CASE EVENT DATE: 20191202
